FAERS Safety Report 4640393-3 (Version None)
Quarter: 2005Q2

REPORT INFORMATION
  Report Type: 
  Country: None (occurrence: None)
  Receive Date: 20050420
  Receipt Date: 20050308
  Transmission Date: 20051028
  Serious: Yes (Life-Threatening)
  Sender: FDA-Public Use
  Company Number: PHBS2005ES03416

PATIENT
  Age: 77 Year
  Sex: Male

DRUGS (13)
  1. NIFEDIPINE [Suspect]
     Indication: HYPERTENSION
     Dosage: 60 MG, Q12H
  2. CAPTOPRIL (NGX) [Suspect]
     Dosage: 25 MG, Q12H
  3. METFORMIN [Concomitant]
     Dosage: 850 MG, Q12H
  4. GLIBENCLAMIDE [Concomitant]
     Dosage: 5 MG, Q12H
  5. ASPIRIN [Concomitant]
     Dosage: 300 MG, QD
  6. ALBUTEROL [Concomitant]
  7. BUDESONIDE [Concomitant]
  8. CLARITHROMYCIN (NGX) [Suspect]
     Dosage: 500 MG, Q12H
  9. DOXAZOSIN (NGX) [Suspect]
  10. DOXAZOSIN (NGX) [Suspect]
     Dosage: 8 MG, QD
  11. VALSARTAN [Suspect]
     Indication: HYPERTENSION
     Dosage: 80 MG, Q12H
  12. FUROSEMIDE [Concomitant]
  13. ERYTHROMYCIN [Concomitant]
     Dosage: 500 MG, Q6H
     Route: 042

REACTIONS (22)
  - ABDOMINAL PAIN [None]
  - ATRIOVENTRICULAR BLOCK [None]
  - BLOOD CREATINE PHOSPHOKINASE INCREASED [None]
  - BRADYCARDIA [None]
  - COUGH [None]
  - CYANOSIS [None]
  - DEPRESSED LEVEL OF CONSCIOUSNESS [None]
  - DRUG INTERACTION [None]
  - DYSPNOEA [None]
  - HYPERGLYCAEMIA [None]
  - HYPERKALAEMIA [None]
  - HYPOCALCAEMIA [None]
  - HYPONATRAEMIA [None]
  - HYPOTENSION [None]
  - METABOLIC ACIDOSIS [None]
  - OEDEMA [None]
  - PERIPHERAL COLDNESS [None]
  - PRODUCTIVE COUGH [None]
  - PULSE ABSENT [None]
  - RENAL IMPAIRMENT [None]
  - SHOCK [None]
  - TACHYPNOEA [None]
